FAERS Safety Report 10033926 (Version 1)
Quarter: 2014Q1

REPORT INFORMATION
  Report Type: Spontaneous
  Country: IL (occurrence: IL)
  Receive Date: 20140325
  Receipt Date: 20140325
  Transmission Date: 20141002
  Serious: Yes (Hospitalization)
  Sender: FDA-Public Use
  Company Number: IL-BRISTOL-MYERS SQUIBB COMPANY-20473187

PATIENT
  Age: 57 Year
  Sex: Male

DRUGS (3)
  1. ABILIFY [Suspect]
     Dosage: INCREASED TO 10 MG
     Dates: start: 20140224, end: 2014
  2. REMERON [Concomitant]
  3. CIPRALEX [Concomitant]

REACTIONS (4)
  - Fall [Unknown]
  - Head injury [Unknown]
  - Haemorrhage intracranial [Unknown]
  - Hypotension [Unknown]
